FAERS Safety Report 4433416-8 (Version None)
Quarter: 2004Q3

REPORT INFORMATION
  Report Type: 
  Country: None (occurrence: None)
  Receive Date: 20040824
  Receipt Date: 20040819
  Transmission Date: 20050211
  Serious: Yes (Hospitalization)
  Sender: FDA-Public Use
  Company Number: KII-1998-0006206

PATIENT
  Sex: Female

DRUGS (1)
  1. OXYCONTIN [Suspect]
     Dosage: 40 MG, Q12H,

REACTIONS (1)
  - DELIRIUM [None]
